FAERS Safety Report 14616331 (Version 1)
Quarter: 2018Q1

REPORT INFORMATION
  Report Type: Spontaneous
  Country: US (occurrence: US)
  Receive Date: 20180309
  Receipt Date: 20180309
  Transmission Date: 20180509
  Serious: No
  Sender: FDA-Public Use
  Company Number: US-PFIZER INC-2018093310

PATIENT
  Age: 70 Year
  Sex: Male

DRUGS (2)
  1. OXYCODONE [Suspect]
     Active Substance: OXYCODONE
     Dosage: 30 MG, UNK
     Dates: end: 201402
  2. XANAX [Suspect]
     Active Substance: ALPRAZOLAM
     Dosage: UNK
     Dates: end: 201402

REACTIONS (5)
  - Eating disorder [Unknown]
  - Drug ineffective [Unknown]
  - Speech disorder [Unknown]
  - Withdrawal syndrome [Unknown]
  - Thinking abnormal [Unknown]
